FAERS Safety Report 13455360 (Version 1)
Quarter: 2017Q2

REPORT INFORMATION
  Report Type: Spontaneous
  Country: IT (occurrence: IT)
  Receive Date: 20170418
  Receipt Date: 20170418
  Transmission Date: 20170830
  Serious: Yes (Other)
  Sender: FDA-Public Use
  Company Number: IT-BAUSCH-BL-2017-010307

PATIENT
  Age: 48 Year
  Sex: Female

DRUGS (2)
  1. VERTEPORFIN (NVO) [Suspect]
     Active Substance: VERTEPORFIN
     Indication: CHOROIDAL NEOVASCULARISATION
     Route: 065
  2. LUCENTIS [Concomitant]
     Active Substance: RANIBIZUMAB
     Indication: PRODUCT USED FOR UNKNOWN INDICATION

REACTIONS (1)
  - Retinal depigmentation [Unknown]
